FAERS Safety Report 17216700 (Version 3)
Quarter: 2021Q3

REPORT INFORMATION
  Report Type: Report from Study
  Country: US (occurrence: US)
  Receive Date: 20191230
  Receipt Date: 20210723
  Transmission Date: 20211014
  Serious: Yes (Death, Hospitalization)
  Sender: FDA-Public Use
  Company Number: US-ROCHE-2360373

PATIENT
  Age: 69 Year
  Sex: Male
  Weight: 110.1 kg

DRUGS (30)
  1. ATEZOLIZUMAB. [Suspect]
     Active Substance: ATEZOLIZUMAB
     Dosage: ON DAY 1 OF EACH 21?DAY CYCLE AS PER PROTOCOL
     Route: 041
     Dates: start: 20190820, end: 20190820
  2. ROGARATINIB [Suspect]
     Active Substance: ROGARATINIB
     Route: 048
     Dates: start: 20200114, end: 20200120
  3. ROGARATINIB [Suspect]
     Active Substance: ROGARATINIB
     Route: 048
     Dates: start: 20200121, end: 20200121
  4. ATEZOLIZUMAB. [Suspect]
     Active Substance: ATEZOLIZUMAB
     Dosage: ON DAY 1 OF EACH 21?DAY CYCLE AS PER PROTOCOL
     Route: 041
     Dates: start: 20191203, end: 20191203
  5. ROGARATINIB [Suspect]
     Active Substance: ROGARATINIB
     Route: 048
     Dates: start: 20191001, end: 20191021
  6. ATEZOLIZUMAB. [Suspect]
     Active Substance: ATEZOLIZUMAB
     Dosage: ON DAY 1 OF EACH 21?DAY CYCLE AS PER PROTOCOL
     Route: 041
     Dates: start: 20191022, end: 20191022
  7. ATEZOLIZUMAB. [Suspect]
     Active Substance: ATEZOLIZUMAB
     Dosage: ON DAY 1 OF EACH 21?DAY CYCLE AS PER PROTOCOL
     Route: 041
     Dates: start: 20200114, end: 20200114
  8. ATEZOLIZUMAB. [Suspect]
     Active Substance: ATEZOLIZUMAB
     Dosage: ON DAY 1 OF EACH 21?DAY CYCLE AS PER PROTOCOL
     Route: 041
     Dates: start: 20200303, end: 20200303
  9. ATEZOLIZUMAB. [Suspect]
     Active Substance: ATEZOLIZUMAB
     Dosage: ON DAY 1 OF EACH 21?DAY CYCLE AS PER PROTOCOL
     Route: 041
     Dates: start: 20200324, end: 20200324
  10. ROGARATINIB [Suspect]
     Active Substance: ROGARATINIB
     Route: 048
     Dates: start: 20190730, end: 20190819
  11. ROGARATINIB [Suspect]
     Active Substance: ROGARATINIB
     Route: 048
     Dates: start: 20200128, end: 20200203
  12. ROGARATINIB [Suspect]
     Active Substance: ROGARATINIB
     Route: 048
     Dates: start: 20200225, end: 20200225
  13. ATEZOLIZUMAB. [Suspect]
     Active Substance: ATEZOLIZUMAB
     Dosage: ON DAY 1 OF EACH 21?DAY CYCLE AS PER PROTOCOL
     Route: 041
     Dates: start: 20191001, end: 20191001
  14. ATEZOLIZUMAB. [Suspect]
     Active Substance: ATEZOLIZUMAB
     Dosage: ON DAY 1 OF EACH 21?DAY CYCLE AS PER PROTOCOL
     Route: 041
     Dates: start: 20191112, end: 20191112
  15. ATEZOLIZUMAB. [Suspect]
     Active Substance: ATEZOLIZUMAB
     Dosage: ON DAY 1 OF EACH 21?DAY CYCLE AS PER PROTOCOL
     Route: 041
     Dates: start: 20200204, end: 20200204
  16. ROGARATINIB [Suspect]
     Active Substance: ROGARATINIB
     Route: 048
     Dates: start: 20191022, end: 20191111
  17. ATEZOLIZUMAB. [Suspect]
     Active Substance: ATEZOLIZUMAB
     Indication: TRANSITIONAL CELL CARCINOMA
     Dosage: ON DAY 1 OF EACH 21?DAY CYCLE AS PER PROTOCOL
     Route: 041
     Dates: start: 20190709, end: 20190709
  18. ATEZOLIZUMAB. [Suspect]
     Active Substance: ATEZOLIZUMAB
     Dosage: ON DAY 1 OF EACH 21?DAY CYCLE AS PER PROTOCOL
     Route: 041
     Dates: start: 20190910, end: 20190910
  19. ATEZOLIZUMAB. [Suspect]
     Active Substance: ATEZOLIZUMAB
     Dosage: ON DAY 1 OF EACH 21?DAY CYCLE AS PER PROTOCOL
     Route: 041
     Dates: start: 20191224, end: 20191224
  20. ROGARATINIB [Suspect]
     Active Substance: ROGARATINIB
     Route: 048
     Dates: start: 20190820, end: 20190909
  21. ROGARATINIB [Suspect]
     Active Substance: ROGARATINIB
     Route: 048
     Dates: start: 20191112, end: 20191202
  22. ROGARATINIB [Suspect]
     Active Substance: ROGARATINIB
     Route: 048
     Dates: start: 20191203, end: 20191223
  23. ATEZOLIZUMAB. [Suspect]
     Active Substance: ATEZOLIZUMAB
     Dosage: ON DAY 1 OF EACH 21?DAY CYCLE AS PER PROTOCOL
     Route: 041
     Dates: start: 20190730, end: 20190730
  24. ROGARATINIB [Suspect]
     Active Substance: ROGARATINIB
     Indication: TRANSITIONAL CELL CARCINOMA
     Route: 048
     Dates: start: 20190709, end: 20190712
  25. ROGARATINIB [Suspect]
     Active Substance: ROGARATINIB
     Route: 048
     Dates: start: 20190910, end: 20190930
  26. ROGARATINIB [Suspect]
     Active Substance: ROGARATINIB
     Route: 048
     Dates: start: 20200204, end: 20200224
  27. ROGARATINIB [Suspect]
     Active Substance: ROGARATINIB
     Route: 048
     Dates: start: 20200303, end: 20200316
  28. ROGARATINIB [Suspect]
     Active Substance: ROGARATINIB
     Route: 048
     Dates: start: 20200324, end: 20200325
  29. ROGARATINIB [Suspect]
     Active Substance: ROGARATINIB
     Route: 048
     Dates: start: 20190723, end: 20190729
  30. ROGARATINIB [Suspect]
     Active Substance: ROGARATINIB
     Route: 048
     Dates: start: 20191224, end: 20200113

REACTIONS (2)
  - Dehydration [Recovered/Resolved]
  - Diarrhoea haemorrhagic [Recovered/Resolved]

NARRATIVE: CASE EVENT DATE: 20190713
